FAERS Safety Report 21605538 (Version 1)
Quarter: 2022Q4

REPORT INFORMATION
  Report Type: Spontaneous
  Country: FR (occurrence: FR)
  Receive Date: 20221116
  Receipt Date: 20221116
  Transmission Date: 20230113
  Serious: Yes (Life-Threatening)
  Sender: FDA-Public Use
  Company Number: None

PATIENT
  Age: 38 Year
  Sex: Female

DRUGS (2)
  1. PROPRANOLOL [Suspect]
     Active Substance: PROPRANOLOL HYDROCHLORIDE
     Indication: Suicide attempt
     Dosage: THERAPY END DATE : NASK, UNIT DOSE :   20 DOSAGE FORMS
     Route: 065
     Dates: start: 20221009
  2. XARELTO [Suspect]
     Active Substance: RIVAROXABAN
     Indication: Suicide attempt
     Dosage: UNIT DOSE :  28 DOSAGE FORMS, THERAPY END DATE : NASK
     Route: 065
     Dates: start: 20221009

REACTIONS (2)
  - Intentional overdose [Recovered/Resolved]
  - Prothrombin time ratio decreased [Recovering/Resolving]

NARRATIVE: CASE EVENT DATE: 20221009
